FAERS Safety Report 21573929 (Version 1)
Quarter: 2022Q4

REPORT INFORMATION
  Report Type: Spontaneous
  Country: US (occurrence: None)
  Receive Date: 20221108
  Receipt Date: 20221108
  Transmission Date: 20230112
  Serious: Yes (Hospitalization)
  Sender: FDA-Public Use
  Company Number: None

PATIENT
  Age: 35 Year
  Sex: Male

DRUGS (2)
  1. ERLOTINIB [Suspect]
     Active Substance: ERLOTINIB
     Dosage: 100MG DAILY ORAL
     Route: 048
     Dates: start: 202111
  2. AVASTIN [Suspect]
     Active Substance: BEVACIZUMAB

REACTIONS (5)
  - Blood pressure increased [None]
  - Abdominal pain [None]
  - Diarrhoea [None]
  - Dehydration [None]
  - Therapy cessation [None]

NARRATIVE: CASE EVENT DATE: 20221102
